FAERS Safety Report 17132636 (Version 1)
Quarter: 2019Q4

REPORT INFORMATION
  Report Type: Spontaneous
  Country: US (occurrence: US)
  Receive Date: 20191115
  Receipt Date: 20191115
  Transmission Date: 20200122
  Serious: Yes (Disabling, Other)
  Sender: FDA-Public Use
  Company Number: None

PATIENT
  Age: 55 Year
  Sex: Female
  Weight: 65.77 kg

DRUGS (12)
  1. LEVOFLOXACIN. [Suspect]
     Active Substance: LEVOFLOXACIN
     Indication: SINUSITIS
     Dosage: ?          QUANTITY:1 DF DOSAGE FORM;?
     Route: 048
     Dates: start: 20180105, end: 20180108
  2. KEVZARA [Concomitant]
     Active Substance: SARILUMAB
  3. LIPITOR (GENERIC) [Concomitant]
  4. METAMUCIL [Concomitant]
     Active Substance: PLANTAGO SEED
  5. VITA D3 [Concomitant]
  6. OMEGAS [Concomitant]
  7. MIRALAX [Concomitant]
     Active Substance: POLYETHYLENE GLYCOL 3350
  8. FLEXERIL (GENERIC) [Concomitant]
  9. LEVOFLOXACIN. [Suspect]
     Active Substance: LEVOFLOXACIN
     Indication: BRONCHITIS
     Dosage: ?          QUANTITY:1 DF DOSAGE FORM;?
     Route: 048
     Dates: start: 20180105, end: 20180108
  10. SYNTHROID [Concomitant]
     Active Substance: LEVOTHYROXINE SODIUM
  11. VITA A [Concomitant]
  12. MELOXICAM. [Concomitant]
     Active Substance: MELOXICAM

REACTIONS (2)
  - Tendon rupture [None]
  - Neuropathy peripheral [None]

NARRATIVE: CASE EVENT DATE: 20180108
